FAERS Safety Report 5661964-1 (Version None)
Quarter: 2008Q2

REPORT INFORMATION
  Report Type: 
  Country: None (occurrence: None)
  Receive Date: 20080201
  Receipt Date: 20070730
  Transmission Date: 20081010
  Serious: Yes (Death)
  Sender: FDA-Public Use
  Company Number: 9039997-2007-00088

PATIENT

DRUGS (3)
  1. 5-AMINOLEVULINIC ACID [Suspect]
     Indication: BARRETT'S OESOPHAGUS
     Dosage: 60 MG/KG
  2. PROTON PUMP INHIBITORS [Concomitant]
  3. OMEPRAZOLE [Concomitant]

REACTIONS (4)
  - NAUSEA [None]
  - PAIN [None]
  - TRANSAMINASES INCREASED [None]
  - VOMITING [None]
